FAERS Safety Report 7185073-8 (Version None)
Quarter: 2010Q4

REPORT INFORMATION
  Report Type: 
  Country: None (occurrence: None)
  Receive Date: 20101123
  Receipt Date: 20100823
  Transmission Date: 20110411
  Serious: No
  Sender: FDA-Public Use
  Company Number: 017673

PATIENT
  Sex: Female
  Weight: 75.7 kg

DRUGS (3)
  1. CIMZIA [Suspect]
     Indication: CROHN'S DISEASE
     Dosage: (400 MG 1X/2 WEEKS SUBCUTANEOUS)
     Route: 058
     Dates: start: 20090401
  2. AZATHIOPRINE [Concomitant]
  3. VITAMINS /90003601/ [Concomitant]

REACTIONS (2)
  - NEUROPATHY PERIPHERAL [None]
  - PRURITUS [None]
